FAERS Safety Report 11902154 (Version 1)
Quarter: 2016Q1

REPORT INFORMATION
  Report Type: Spontaneous
  Country: US (occurrence: US)
  Receive Date: 20160108
  Receipt Date: 20160108
  Transmission Date: 20160526
  Serious: Yes (Other)
  Sender: FDA-Public Use
  Company Number: US-BAUSCH-BL-2016-000121

PATIENT
  Age: 16 Year
  Sex: Male
  Weight: 70 kg

DRUGS (1)
  1. RIBAVIRIN. [Suspect]
     Active Substance: RIBAVIRIN
     Indication: RESPIRATORY SYNCYTIAL VIRUS INFECTION
     Route: 042
     Dates: start: 20151224

REACTIONS (3)
  - Blood uric acid increased [Not Recovered/Not Resolved]
  - Renal failure [Unknown]
  - Creatinine renal clearance decreased [Not Recovered/Not Resolved]

NARRATIVE: CASE EVENT DATE: 20150104
